FAERS Safety Report 9165270 (Version 1)
Quarter: 2013Q1

REPORT INFORMATION
  Report Type: Spontaneous
  Country: FR (occurrence: None)
  Receive Date: 20130228
  Receipt Date: 20130228
  Transmission Date: 20140127
  Serious: Yes (Hospitalization)
  Sender: FDA-Public Use
  Company Number: SYM-2013-00909

PATIENT
  Age: 85 Year
  Sex: Male

DRUGS (4)
  1. RENITEC [Suspect]
     Indication: PRODUCT USED FOR UNKNOWN INDICATION
     Route: 048
     Dates: start: 201112, end: 201211
  2. BISOCOR (BISOPROLOL FUMARATE) (BISOPROLOL FUMARATE) [Concomitant]
  3. COUMADIN (WARFARIN SODIUM) (WARFARIN SODIUM) [Concomitant]
  4. HEMIGOXINE NATIVELLE (DIGOXIN) (DIGOXIN) [Concomitant]

REACTIONS (5)
  - Dyspnoea exertional [None]
  - General physical health deterioration [None]
  - Cachexia [None]
  - Interstitial lung disease [None]
  - Cough [None]
